FAERS Safety Report 6624894-4 (Version None)
Quarter: 2010Q1

REPORT INFORMATION
  Report Type: 
  Country: None (occurrence: None)
  Receive Date: 20100310
  Receipt Date: 20090929
  Transmission Date: 20100710
  Serious: Yes (Other)
  Sender: FDA-Public Use
  Company Number: US-BIOGENIDEC-2009BI029323

PATIENT
  Age: 36 Year
  Sex: Female
  Weight: 44 kg

DRUGS (3)
  1. AVONEX [Suspect]
     Indication: MULTIPLE SCLEROSIS
     Route: 030
     Dates: start: 19960101, end: 20000101
  2. AVONEX [Suspect]
     Route: 030
     Dates: start: 20011001, end: 20030901
  3. AVONEX [Suspect]
     Route: 030
     Dates: start: 20030901

REACTIONS (4)
  - CONVULSION [None]
  - HYPOGLYCAEMIA [None]
  - LOSS OF CONSCIOUSNESS [None]
  - SYNCOPE [None]
